FAERS Safety Report 16982146 (Version 3)
Quarter: 2019Q4

REPORT INFORMATION
  Report Type: Spontaneous
  Country: JP (occurrence: JP)
  Receive Date: 20191101
  Receipt Date: 20191226
  Transmission Date: 20200122
  Serious: Yes (Death, Hospitalization, Other)
  Sender: FDA-Public Use
  Company Number: JP-BRISTOL-MYERS SQUIBB COMPANY-BMS-2019-102494

PATIENT
  Age: 63 Year
  Sex: Male
  Weight: 60 kg

DRUGS (8)
  1. YERVOY [Suspect]
     Active Substance: IPILIMUMAB
     Indication: RENAL CELL CARCINOMA
     Dosage: 58 MILLIGRAM
     Route: 041
     Dates: start: 20191016, end: 20191016
  2. OPDIVO [Suspect]
     Active Substance: NIVOLUMAB
     Indication: RENAL CELL CARCINOMA
     Dosage: 240 MILLIGRAM
     Route: 041
     Dates: start: 20191016, end: 20191016
  3. NARUSUS [Concomitant]
     Active Substance: HYDROMORPHONE HYDROCHLORIDE
     Indication: PRODUCT USED FOR UNKNOWN INDICATION
     Dosage: 2 MILLIGRAM, QD
     Route: 048
     Dates: start: 20191010, end: 20191017
  4. TRAMCET [Concomitant]
     Active Substance: ACETAMINOPHEN\TRAMADOL
     Indication: PRODUCT USED FOR UNKNOWN INDICATION
     Dosage: 2 DOSAGE FORM, QID
     Route: 048
     Dates: start: 20191017, end: 20191021
  5. METOCLOPRAMIDE. [Concomitant]
     Active Substance: METOCLOPRAMIDE
     Indication: PRODUCT USED FOR UNKNOWN INDICATION
     Dosage: 5 MILLIGRAM, TID
     Route: 048
     Dates: start: 20191010, end: 20191017
  6. SENNOSIDE A+B [Concomitant]
     Active Substance: SENNOSIDES A AND B
     Indication: PRODUCT USED FOR UNKNOWN INDICATION
     Dosage: 12 MILLIGRAM, QD
     Route: 048
     Dates: start: 20191010, end: 20191017
  7. EPOGIN [Concomitant]
     Active Substance: ERYTHROPOIETIN
     Indication: PRODUCT USED FOR UNKNOWN INDICATION
     Dosage: 3000 INTERNATIONAL UNIT, 3 TIMES/WK
     Route: 041
     Dates: start: 20191016, end: 20191021
  8. NARURAPID [Concomitant]
     Active Substance: HYDROMORPHONE HYDROCHLORIDE
     Indication: PRODUCT USED FOR UNKNOWN INDICATION
     Dosage: 1 MILLIGRAM, QD
     Route: 048
     Dates: start: 20191010, end: 20191017

REACTIONS (2)
  - Myocarditis [Fatal]
  - Myositis [Fatal]

NARRATIVE: CASE EVENT DATE: 20191021
